FAERS Safety Report 5550512-2 (Version None)
Quarter: 2007Q4

REPORT INFORMATION
  Report Type: 
  Country: None (occurrence: None)
  Receive Date: 20071212
  Receipt Date: 20070504
  Transmission Date: 20080405
  Serious: No
  Sender: FDA-Public Use
  Company Number: US-AMGEN-KDL218078

PATIENT
  Sex: Male

DRUGS (2)
  1. ENBREL [Suspect]
     Indication: PSORIASIS
     Route: 058
     Dates: start: 20051018
  2. CLOBETASOL PROPIONATE [Suspect]
     Route: 061
     Dates: start: 20060904

REACTIONS (3)
  - BLOOD BLISTER [None]
  - ECCHYMOSIS [None]
  - RASH ERYTHEMATOUS [None]
